FAERS Safety Report 4934159-4 (Version None)
Quarter: 2006Q1

REPORT INFORMATION
  Report Type: 
  Country: None (occurrence: None)
  Receive Date: 20060303
  Receipt Date: 20060217
  Transmission Date: 20060701
  Serious: Yes (Other)
  Sender: FDA-Public Use
  Company Number: 2006S1000041

PATIENT
  Age: 65 Year
  Sex: Male

DRUGS (1)
  1. ACITRETIN [Suspect]
     Indication: RASH PAPULAR
     Dosage: PO
     Route: 048

REACTIONS (1)
  - CARDIAC DISORDER [None]
